FAERS Safety Report 9219591 (Version 3)
Quarter: 2013Q4

REPORT INFORMATION
  Report Type: Report from Study
  Country: CA (occurrence: CA)
  Receive Date: 20130409
  Receipt Date: 20131002
  Transmission Date: 20140711
  Serious: Yes (Other)
  Sender: FDA-Public Use
  Company Number: CA-ROCHE-1200803

PATIENT
  Age: 57 Year
  Sex: Female
  Weight: 58 kg

DRUGS (12)
  1. ACTEMRA [Suspect]
     Indication: RHEUMATOID ARTHRITIS
     Route: 042
     Dates: start: 20121214, end: 20130222
  2. COVERSYL [Concomitant]
  3. PREDNISONE [Concomitant]
  4. FOLIC ACID [Concomitant]
  5. DOMPERIDONE [Concomitant]
  6. RABEPRAZOLE [Concomitant]
  7. LYRICA [Concomitant]
  8. ELAVIL [Concomitant]
  9. BISOPROLOL [Concomitant]
  10. AMOXICILLIN [Concomitant]
     Indication: SINUSITIS
     Dosage: LAST DOSE: 12 NOV 2012
     Route: 065
     Dates: end: 20121123
  11. PLAQUENIL [Concomitant]
     Route: 065
  12. METHOTREXATE [Concomitant]
     Route: 065

REACTIONS (9)
  - Lower limb fracture [Unknown]
  - Fall [Recovered/Resolved]
  - Hypersensitivity [Unknown]
  - Vomiting [Unknown]
  - Influenza like illness [Unknown]
  - Dyspnoea [Unknown]
  - Eye swelling [Unknown]
  - Paraesthesia [Unknown]
  - Malaise [Not Recovered/Not Resolved]
